FAERS Safety Report 20975616 (Version 1)
Quarter: 2022Q2

REPORT INFORMATION
  Report Type: Spontaneous
  Country: US (occurrence: US)
  Receive Date: 20220617
  Receipt Date: 20220617
  Transmission Date: 20220720
  Serious: Yes (Other)
  Sender: FDA-Public Use
  Company Number: US-BRISTOL-MYERS SQUIBB COMPANY-2022-052702

PATIENT

DRUGS (1)
  1. REBLOZYL [Suspect]
     Active Substance: LUSPATERCEPT-AAMT
     Indication: Product used for unknown indication
     Dosage: DOSE : UNAV;     FREQ : UNAV

REACTIONS (6)
  - Extramedullary haemopoiesis [Unknown]
  - Pain [Unknown]
  - Sciatica [Unknown]
  - Nerve injury [Unknown]
  - Thrombosis [Unknown]
  - Deep vein thrombosis [Unknown]
